FAERS Safety Report 4658364-X (Version None)
Quarter: 2005Q2

REPORT INFORMATION
  Report Type: 
  Country: None (occurrence: None)
  Receive Date: 20050509
  Receipt Date: 20050426
  Transmission Date: 20051028
  Serious: Yes (Other)
  Sender: FDA-Public Use
  Company Number: HQWYE582506MAY05

PATIENT

DRUGS (3)
  1. RAPAMUNE [Suspect]
     Indication: PROPHYLAXIS AGAINST TRANSPLANT REJECTION
  2. THYMOGLOBULIN [Concomitant]
  3. CYCLOSPORINE [Concomitant]

REACTIONS (3)
  - BIOPSY KIDNEY ABNORMAL [None]
  - MYOGLOBIN BLOOD INCREASED [None]
  - NEPHROPATHY [None]
